FAERS Safety Report 21650690 (Version 1)
Quarter: 2022Q4

REPORT INFORMATION
  Report Type: Spontaneous
  Country: US (occurrence: None)
  Receive Date: 20221124
  Receipt Date: 20221124
  Transmission Date: 20230113
  Serious: Yes (Death)
  Sender: FDA-Public Use
  Company Number: None

PATIENT
  Age: 61 Year
  Sex: Male
  Weight: 99 kg

DRUGS (11)
  1. CETUXIMAB [Suspect]
     Active Substance: CETUXIMAB
     Indication: Neoplasm malignant
     Dosage: OTHER FREQUENCY : ONCE A WEEK;?
     Route: 042
     Dates: start: 20220530, end: 20220711
  2. PREDNISONE [Concomitant]
     Active Substance: PREDNISONE
  3. CYCLOSPORINE [Concomitant]
     Active Substance: CYCLOSPORINE
  4. MYCOPHENOLIC ACID [Concomitant]
     Active Substance: MYCOPHENOLIC ACID
  5. TAMSULOSIN [Concomitant]
     Active Substance: TAMSULOSIN
  6. OXYCODONE [Concomitant]
     Active Substance: OXYCODONE
  7. CYANOCOBALAMIN\DEXPANTHENOL\NIACINAMIDE\PYRIDOXINE HYDROCHLORIDE\RIBOF [Concomitant]
     Active Substance: CYANOCOBALAMIN\DEXPANTHENOL\NIACINAMIDE\PYRIDOXINE HYDROCHLORIDE\RIBOFLAVIN 5^-PHOSPHATE SODIUM\THIA
  8. CARVEDILOL [Concomitant]
     Active Substance: CARVEDILOL
  9. TYLENOL [Concomitant]
     Active Substance: ACETAMINOPHEN
  10. ASPIRIN [Concomitant]
     Active Substance: ASPIRIN
  11. MELATONIN [Concomitant]
     Active Substance: MELATONIN

REACTIONS (10)
  - Gastrointestinal pain [None]
  - Jaundice [None]
  - Abdominal discomfort [None]
  - Liver function test abnormal [None]
  - Unresponsive to stimuli [None]
  - Hepatic failure [None]
  - Renal failure [None]
  - Staphylococcal bacteraemia [None]
  - Inflammation [None]
  - Hospice care [None]

NARRATIVE: CASE EVENT DATE: 20220705
